FAERS Safety Report 13534320 (Version 1)
Quarter: 2017Q2

REPORT INFORMATION
  Report Type: Spontaneous
  Country: US (occurrence: US)
  Receive Date: 20170510
  Receipt Date: 20170510
  Transmission Date: 20170830
  Serious: Yes (Other)
  Sender: FDA-Public Use
  Company Number: None

PATIENT
  Age: 32 Year
  Sex: Female
  Weight: 106.69 kg

DRUGS (4)
  1. BUPRENORPHINE AND NALOXONE [Suspect]
     Active Substance: BUPRENORPHINE\NALOXONE
     Indication: DRUG USE DISORDER
     Dosage: 8MG-2MG 1.5 2 X DAILY MOUTH
     Route: 048
     Dates: start: 20170416, end: 20170416
  2. DIABETA [Concomitant]
     Active Substance: GLYBURIDE
  3. SUBOXONE [Concomitant]
     Active Substance: BUPRENORPHINE HYDROCHLORIDE\NALOXONE HYDROCHLORIDE
  4. PNV [Concomitant]

REACTIONS (9)
  - Nausea [None]
  - Pain in extremity [None]
  - Rash [None]
  - Somnolence [None]
  - Dyspnoea [None]
  - Foetal hypokinesia [None]
  - Headache [None]
  - Hyperhidrosis [None]
  - Malaise [None]

NARRATIVE: CASE EVENT DATE: 20170416
